FAERS Safety Report 8081453-7 (Version None)
Quarter: 2012Q1

REPORT INFORMATION
  Report Type: 
  Country: None (occurrence: None)
  Receive Date: 20120130
  Receipt Date: 20120124
  Transmission Date: 20120608
  Serious: Yes (Other)
  Sender: FDA-Public Use
  Company Number: US-PFIZER INC-2012005639

PATIENT

DRUGS (18)
  1. BUPROPION [Concomitant]
     Dosage: UNK
  2. FEXOFENADINE [Concomitant]
     Dosage: UNK
  3. LAMOTRIGINE [Concomitant]
     Dosage: UNK
  4. HYDROXYZINE [Concomitant]
     Dosage: UNK
  5. LIPITOR [Concomitant]
     Dosage: 10 MG, 1X/DAY
  6. M.V.I. [Concomitant]
     Dosage: UNK
  7. ROCEPHIN [Suspect]
     Dosage: UNK
  8. ZYPREXA [Suspect]
     Dosage: UNK
  9. TOPROL-XL [Concomitant]
     Dosage: UNK
  10. BUSPIRONE [Concomitant]
     Dosage: UNK
  11. MOBIC [Concomitant]
     Dosage: UNK
  12. CALCIUM [Concomitant]
     Dosage: UNK
  13. MIRALAX [Concomitant]
     Dosage: UNK
  14. ALPRAZOLAM [Suspect]
     Dosage: UNK
  15. POTASSIUM CHLORIDE [Concomitant]
     Dosage: UNK
  16. SEROQUEL [Concomitant]
     Dosage: UNK
  17. VITAMIN B-12 [Concomitant]
     Dosage: UNK
  18. ASPIRIN [Concomitant]
     Dosage: UNK

REACTIONS (1)
  - DRUG HYPERSENSITIVITY [None]
